FAERS Safety Report 21541378 (Version 1)
Quarter: 2022Q4

REPORT INFORMATION
  Report Type: Spontaneous
  Country: US (occurrence: None)
  Receive Date: 20221101
  Receipt Date: 20221101
  Transmission Date: 20230112
  Serious: No
  Sender: FDA-Public Use
  Company Number: None

PATIENT
  Sex: Male

DRUGS (2)
  1. VITRAKVI [Suspect]
     Active Substance: LAROTRECTINIB
     Indication: Head and neck cancer
     Dosage: FREQUENCY : TWICE A DAY;?OTHER ROUTE : G-TUBE;?
     Route: 050
  2. VITRAKVI [Suspect]
     Active Substance: LAROTRECTINIB
     Indication: Tongue neoplasm malignant stage unspecified

REACTIONS (6)
  - Myalgia [None]
  - Orthostatic hypotension [None]
  - Diplopia [None]
  - Vertigo [None]
  - Fatigue [None]
  - Constipation [None]
